FAERS Safety Report 11364042 (Version 1)
Quarter: 2015Q3

REPORT INFORMATION
  Report Type: Spontaneous
  Country: US (occurrence: None)
  Receive Date: 20150810
  Receipt Date: 20150810
  Transmission Date: 20151125
  Serious: No
  Sender: FDA-Public Use
  Company Number: None

PATIENT
  Age: 78 Year
  Sex: Female

DRUGS (1)
  1. COSENTYX [Suspect]
     Active Substance: SECUKINUMAB
     Indication: PSORIASIS
     Route: 058
     Dates: start: 20150413

REACTIONS (4)
  - Malaise [None]
  - Nausea [None]
  - Diarrhoea [None]
  - Drug effect decreased [None]

NARRATIVE: CASE EVENT DATE: 20150713
